FAERS Safety Report 9688914 (Version 3)
Quarter: 2014Q1

REPORT INFORMATION
  Report Type: Report from Study
  Country: JP (occurrence: JP)
  Receive Date: 20131114
  Receipt Date: 20140321
  Transmission Date: 20141002
  Serious: Yes (Hospitalization, Other)
  Sender: FDA-Public Use
  Company Number: JP-ROCHE-1300203

PATIENT
  Age: 61 Year
  Sex: Male

DRUGS (14)
  1. METHOXY POLYETHYLENE GLYCOL-EPOETIN BETA [Suspect]
     Indication: NEPHROGENIC ANAEMIA
     Route: 058
     Dates: start: 20130424, end: 20130424
  2. METHOXY POLYETHYLENE GLYCOL-EPOETIN BETA [Suspect]
     Indication: NEPHROGENIC ANAEMIA
     Route: 042
     Dates: start: 20130605, end: 20130717
  3. METHOXY POLYETHYLENE GLYCOL-EPOETIN BETA [Suspect]
     Indication: NEPHROGENIC ANAEMIA
     Route: 042
     Dates: start: 20130918
  4. PREDNISOLONE [Suspect]
     Indication: GLOMERULONEPHRITIS CHRONIC
     Route: 048
     Dates: start: 201305
  5. NEORAL [Suspect]
     Indication: GLOMERULONEPHRITIS CHRONIC
     Route: 048
     Dates: start: 201305, end: 20131025
  6. ACTONEL [Suspect]
     Indication: PRODUCT USED FOR UNKNOWN INDICATION
     Route: 048
  7. AVAPRO [Concomitant]
     Route: 048
  8. ZETIA [Concomitant]
     Route: 048
  9. EPADEL-S [Concomitant]
     Route: 048
     Dates: end: 20131018
  10. EPADEL-S [Concomitant]
     Route: 048
     Dates: start: 20131021, end: 20131030
  11. CILOSTAZOL [Concomitant]
     Route: 048
     Dates: end: 20131018
  12. CILOSTAZOL [Concomitant]
     Route: 048
     Dates: start: 20131021, end: 20131030
  13. AMLODIPINE [Concomitant]
     Route: 048
     Dates: start: 20131020, end: 20131022
  14. AMLODIPINE [Concomitant]
     Route: 048
     Dates: start: 20131023

REACTIONS (4)
  - Thrombotic thrombocytopenic purpura [Recovering/Resolving]
  - Calculus ureteric [Recovered/Resolved]
  - Hypertension [Unknown]
  - Gastric ulcer [Recovering/Resolving]
